FAERS Safety Report 4332794-8 (Version None)
Quarter: 2004Q2

REPORT INFORMATION
  Report Type: 
  Country: None (occurrence: None)
  Receive Date: 20040406
  Receipt Date: 20040325
  Transmission Date: 20050107
  Serious: Yes (Hospitalization)
  Sender: FDA-Public Use
  Company Number: US-BRISTOL-MYERS SQUIBB COMPANY-12542692

PATIENT
  Age: 86 Year
  Sex: Female

DRUGS (11)
  1. PRAVASTATIN SODIUM [Suspect]
     Route: 048
     Dates: start: 20031101
  2. FOLTX [Concomitant]
  3. NORVASC [Concomitant]
  4. VIOXX [Concomitant]
  5. PROTONIX [Concomitant]
  6. LORAZEPAM [Concomitant]
  7. COMBIVIR [Concomitant]
  8. POTASSIUM CHLORIDE [Concomitant]
  9. VERAPAMIL [Concomitant]
  10. FUROSEMIDE [Concomitant]
  11. CYPROHEPTADINE HCL [Concomitant]

REACTIONS (4)
  - ASTHENIA [None]
  - DRUG INEFFECTIVE [None]
  - DYSPNOEA [None]
  - OEDEMA PERIPHERAL [None]
